FAERS Safety Report 17022525 (Version 1)
Quarter: 2019Q4

REPORT INFORMATION
  Report Type: Spontaneous
  Country: US (occurrence: US)
  Receive Date: 20191008
  Receipt Date: 20191008
  Transmission Date: 20200122
  Serious: Yes (Other)
  Sender: FDA-Public Use
  Company Number: None

PATIENT
  Age: 79 Year
  Sex: Female
  Weight: 65.77 kg

DRUGS (8)
  1. CALCIUM + VIT D [Concomitant]
     Active Substance: CALCIUM\VITAMIN D
  2. PROBIOTIC [Concomitant]
     Active Substance: PROBIOTICS NOS
  3. TROSPIUM CHLORIDE. [Suspect]
     Active Substance: TROSPIUM CHLORIDE
     Indication: HYPERTONIC BLADDER
     Dosage: WAS 2 A DAY AND THEN REDUCED TO 1 A DAY ?
     Route: 048
     Dates: start: 20190325, end: 20190613
  4. TROSPIUM CHLORIDE 20MG [Concomitant]
  5. CRANBERRY PILL [Concomitant]
     Active Substance: CRANBERRY
  6. METOPROLOL. [Concomitant]
     Active Substance: METOPROLOL
  7. HYDROCHLOROTHIAZIDE 25MG [Concomitant]
     Active Substance: HYDROCHLOROTHIAZIDE
  8. PANTOPROZOLE SODIUM [Concomitant]

REACTIONS (3)
  - Dry mouth [None]
  - Dry skin [None]
  - Dental caries [None]

NARRATIVE: CASE EVENT DATE: 20190325
